FAERS Safety Report 8578144-2 (Version None)
Quarter: 2012Q3

REPORT INFORMATION
  Report Type: 
  Country: None (occurrence: None)
  Receive Date: 20120808
  Receipt Date: 20120730
  Transmission Date: 20120928
  Serious: Yes (Other)
  Sender: FDA-Public Use
  Company Number: US-BAYER-2012-037809

PATIENT
  Age: 26 Year
  Sex: Female
  Weight: 86.168 kg

DRUGS (4)
  1. YASMIN [Suspect]
  2. KLONOPIN [Concomitant]
     Indication: ANXIETY
     Dosage: 0.5 MG, PRN
     Dates: start: 20100101
  3. LEXAPRO [Concomitant]
     Indication: ANXIETY
     Dosage: 45 MG, DAILY
     Dates: start: 20090101
  4. DROSPIRENONE AND ETHINYL ESTRADIOL [Suspect]
     Indication: CONTRACEPTION
     Dosage: UNK
     Dates: start: 20070101

REACTIONS (4)
  - GALLBLADDER DISORDER [None]
  - INJURY [None]
  - BILIARY DYSKINESIA [None]
  - PAIN [None]
